FAERS Safety Report 5926506-1 (Version None)
Quarter: 2008Q4

REPORT INFORMATION
  Report Type: 
  Country: None (occurrence: None)
  Receive Date: 20081022
  Receipt Date: 20081014
  Transmission Date: 20090506
  Serious: Yes (Hospitalization)
  Sender: FDA-Public Use
  Company Number: ES-PURDUE-GBR_2008_0004523

PATIENT
  Age: 82 Year
  Sex: Female

DRUGS (7)
  1. MST CONTINUS TABLETS 10 MG [Suspect]
     Indication: BACK PAIN
     Dosage: UNK, UNK
     Route: 065
     Dates: start: 20061213, end: 20061230
  2. NEURONTIN [Suspect]
     Indication: BACK PAIN
     Dosage: 900 MG, DAILY
     Route: 048
     Dates: start: 20061215, end: 20061230
  3. OMEPRAZOL                          /00661201/ [Concomitant]
     Indication: DRUG USE FOR UNKNOWN INDICATION
     Dosage: 10 MG, DAILY
     Route: 065
  4. ACOVIL [Concomitant]
     Indication: DRUG USE FOR UNKNOWN INDICATION
     Dosage: 10 MG, UNK
     Route: 065
  5. NEURONTIN [Concomitant]
     Indication: DRUG USE FOR UNKNOWN INDICATION
     Dosage: 900 MG, DAILY
     Route: 048
     Dates: start: 20040101, end: 20061214
  6. NOVOMIX 30                         /02607201/ [Concomitant]
     Indication: DRUG USE FOR UNKNOWN INDICATION
     Dosage: 10 MG, DAILY
     Route: 065
  7. PREVENCOR                          /01326102/ [Concomitant]
     Indication: DRUG USE FOR UNKNOWN INDICATION
     Dosage: 20 MG, DAILY
     Route: 048

REACTIONS (6)
  - ACUTE PSYCHOSIS [None]
  - CHOREA [None]
  - CONFUSIONAL STATE [None]
  - CREATININE RENAL CLEARANCE DECREASED [None]
  - HALLUCINATION [None]
  - SOMNOLENCE [None]
